FAERS Safety Report 10669843 (Version 3)
Quarter: 2015Q1

REPORT INFORMATION
  Report Type: Report from Study
  Country: US (occurrence: US)
  Receive Date: 20141222
  Receipt Date: 20150204
  Transmission Date: 20150720
  Serious: Yes (Hospitalization, Other)
  Sender: FDA-Public Use
  Company Number: US-GILEAD-2014-0124220

PATIENT
  Age: 79 Year
  Sex: Male

DRUGS (7)
  1. BABY ASPIRIN [Concomitant]
     Active Substance: ASPIRIN
     Indication: PRODUCT USED FOR UNKNOWN INDICATION
     Dosage: UNK
  2. IDELALISIB [Suspect]
     Active Substance: IDELALISIB
     Indication: LYMPHOMA
     Dosage: 150 MG, UNK
     Route: 048
     Dates: start: 20140913, end: 20141118
  3. LIPITOR [Concomitant]
     Active Substance: ATORVASTATIN CALCIUM
     Indication: BLOOD CHOLESTEROL
     Dosage: UNK
  4. LISINOPRIL. [Concomitant]
     Active Substance: LISINOPRIL
     Indication: BLOOD PRESSURE
     Dosage: UNK
  5. LORTAB [Concomitant]
     Active Substance: ACETAMINOPHEN\HYDROCODONE BITARTRATE
     Indication: PAIN
     Dosage: UNK
  6. ZOLOFT P [Concomitant]
     Indication: PRODUCT USED FOR UNKNOWN INDICATION
     Dosage: UNK
  7. TRAMADOL [Concomitant]
     Active Substance: TRAMADOL
     Indication: PAIN
     Dosage: UNK

REACTIONS (12)
  - Diarrhoea [Recovering/Resolving]
  - Dehydration [Unknown]
  - Rash generalised [Not Recovered/Not Resolved]
  - Infectious colitis [Unknown]
  - Body temperature fluctuation [Unknown]
  - Night sweats [Not Recovered/Not Resolved]
  - Pain [Not Recovered/Not Resolved]
  - Dyspnoea exertional [Not Recovered/Not Resolved]
  - Pyrexia [Not Recovered/Not Resolved]
  - Lung infection [Unknown]
  - Rash [Not Recovered/Not Resolved]
  - Pruritus [Recovering/Resolving]

NARRATIVE: CASE EVENT DATE: 201411
